FAERS Safety Report 26097050 (Version 1)
Quarter: 2025Q4

REPORT INFORMATION
  Report Type: Spontaneous
  Country: CN (occurrence: CN)
  Receive Date: 20251127
  Receipt Date: 20251127
  Transmission Date: 20260117
  Serious: Yes (Hospitalization, Other)
  Sender: Haleon PLC
  Company Number: CN-HALEON-2276077

PATIENT
  Age: 16 Year
  Sex: Female
  Weight: 42 kg

DRUGS (2)
  1. DICLOFENAC SODIUM [Suspect]
     Active Substance: DICLOFENAC SODIUM
     Indication: Symptomatic treatment
     Dates: start: 20251015, end: 20251015
  2. ACETAMINOPHEN\AMANTADINE HYDROCHLORIDE [Suspect]
     Active Substance: ACETAMINOPHEN\AMANTADINE HYDROCHLORIDE
     Indication: Symptomatic treatment
     Dates: start: 20251015, end: 20251015

REACTIONS (3)
  - Renal tubular disorder [Recovering/Resolving]
  - Nocturia [Recovering/Resolving]
  - Renal tubular injury [Recovering/Resolving]

NARRATIVE: CASE EVENT DATE: 20251020
